FAERS Safety Report 4480907-X (Version None)
Quarter: 2004Q3

REPORT INFORMATION
  Report Type: 
  Country: None (occurrence: None)
  Receive Date: 20040923
  Receipt Date: 20040805
  Transmission Date: 20050211
  Serious: No
  Sender: FDA-Public Use
  Company Number: USA040568466

PATIENT
  Age: 64 Year
  Sex: Female
  Weight: 50 kg

DRUGS (5)
  1. FORTEO [Suspect]
     Indication: OSTEOPOROSIS
     Dosage: 20 UG EVERY OTHER DAY
     Dates: start: 20040426, end: 20040701
  2. LOSARTAN POTASSIUM W/HYDROCHLOROTHIAZIDE [Concomitant]
  3. CALCIUM PLUS D [Concomitant]
  4. MULTI-VITAMIN [Concomitant]
  5. ACTONEL [Concomitant]

REACTIONS (8)
  - ABDOMINAL DISTENSION [None]
  - HEADACHE [None]
  - INJECTION SITE DISCOLOURATION [None]
  - INJECTION SITE NODULE [None]
  - INJECTION SITE PAIN [None]
  - MUSCLE CRAMP [None]
  - NAUSEA [None]
  - OEDEMA PERIPHERAL [None]
